FAERS Safety Report 10768443 (Version 1)
Quarter: 2015Q1

REPORT INFORMATION
  Report Type: Spontaneous
  Country: FR (occurrence: FR)
  Receive Date: 20150206
  Receipt Date: 20150206
  Transmission Date: 20150721
  Serious: Yes (Hospitalization)
  Sender: FDA-Public Use
  Company Number: FR-ROCHE-1533530

PATIENT
  Age: 40 Year
  Sex: Male

DRUGS (2)
  1. TERCIAN [Suspect]
     Active Substance: CYAMEMAZINE
     Indication: SUICIDE ATTEMPT
     Route: 048
     Dates: start: 20140424, end: 20140424
  2. VALIUM [Suspect]
     Active Substance: DIAZEPAM
     Indication: SUICIDE ATTEMPT
     Route: 048
     Dates: start: 20140424, end: 20140424

REACTIONS (3)
  - Miosis [Recovered/Resolved]
  - Toxicity to various agents [Recovered/Resolved]
  - Coma [Recovered/Resolved]

NARRATIVE: CASE EVENT DATE: 20140424
